FAERS Safety Report 15066622 (Version 1)
Quarter: 2018Q2

REPORT INFORMATION
  Report Type: Spontaneous
  Country: CA (occurrence: CA)
  Receive Date: 20180626
  Receipt Date: 20180626
  Transmission Date: 20180711
  Serious: Yes (Other)
  Sender: FDA-Public Use
  Company Number: CA-CELLTRION INC.-2018CA020132

PATIENT

DRUGS (6)
  1. PREDNISONE. [Concomitant]
     Active Substance: PREDNISONE
     Dosage: UNK
  2. INFLECTRA [Suspect]
     Active Substance: INFLIXIMAB-DYYB
     Indication: COLITIS ULCERATIVE
     Dosage: 600 MG, CYCLIC(EVERY 0,2,6 WEEKS THEN EVERY 8 WEEKS
     Route: 042
     Dates: start: 20180507
  3. INFLECTRA [Suspect]
     Active Substance: INFLIXIMAB-DYYB
     Indication: PYODERMA GANGRENOSUM
     Dosage: 600 MG, CYCLIC(EVERY 0,2,6 WEEKS THEN EVERY 8 WEEKS
     Route: 042
     Dates: start: 20180521
  4. INFLECTRA [Suspect]
     Active Substance: INFLIXIMAB-DYYB
     Dosage: 600 MG, CYCLIC(EVERY 0,2,6 WEEKS THEN EVERY 8 WEEKS
     Route: 042
     Dates: start: 20180618
  5. PURE BAKING SODA [Concomitant]
     Active Substance: SODIUM BICARBONATE
     Dosage: 1/4 TEASPOON FOR CLITIS SYMPTOMS (STOOL HARDENER)
  6. IRBESARTAN. [Concomitant]
     Active Substance: IRBESARTAN
     Indication: BLOOD PRESSURE MEASUREMENT
     Dosage: 300 MG, DAILY

REACTIONS (3)
  - Body temperature decreased [Unknown]
  - Latent tuberculosis [Unknown]
  - Hypertension [Unknown]

NARRATIVE: CASE EVENT DATE: 20180521
